FAERS Safety Report 8595807-3 (Version None)
Quarter: 2012Q3

REPORT INFORMATION
  Report Type: 
  Country: None (occurrence: None)
  Receive Date: 20120815
  Receipt Date: 20120810
  Transmission Date: 20120928
  Serious: No
  Sender: FDA-Public Use
  Company Number: US-ASTRAZENECA-2009UW07072

PATIENT
  Age: 86 Year
  Sex: Female

DRUGS (2)
  1. PULMICORT FLEXHALER [Suspect]
     Dosage: 180 MCG, FREQUENCY UNKNOWN
     Route: 055
  2. PULMICORT FLEXHALER [Suspect]
     Route: 055

REACTIONS (3)
  - RHINORRHOEA [None]
  - OROPHARYNGEAL PAIN [None]
  - GASTROOESOPHAGEAL REFLUX DISEASE [None]
